FAERS Safety Report 10745665 (Version 1)
Quarter: 2015Q1

REPORT INFORMATION
  Report Type: Spontaneous
  Country: US (occurrence: None)
  Receive Date: 20150120
  Receipt Date: 20150120
  Transmission Date: 20150721
  Serious: No
  Sender: FDA-Public Use
  Company Number: AEGR000947

PATIENT
  Age: 78 Year
  Sex: Female
  Weight: 66.7 kg

DRUGS (15)
  1. LISINOPRIL. [Concomitant]
     Active Substance: LISINOPRIL
  2. SPIRIVA (TIOTROPIUM BROMIDE) [Concomitant]
  3. ALPRAZOLAM. [Concomitant]
     Active Substance: ALPRAZOLAM
  4. FOLIC ACID. [Concomitant]
     Active Substance: FOLIC ACID
  5. IBUPROFEN. [Concomitant]
     Active Substance: IBUPROFEN
  6. VITAMIN E [Concomitant]
     Active Substance: .ALPHA.-TOCOPHEROL
  7. JUXTAPID [Suspect]
     Active Substance: LOMITAPIDE MESYLATE
     Indication: TYPE IIA HYPERLIPIDAEMIA
     Dates: start: 20140312
  8. ALBUTEROL (ALBUTEROL) AEROSOL (SPRAY AND INHALATION) [Concomitant]
  9. AMLODIPINE [Concomitant]
     Active Substance: AMLODIPINE BESYLATE
  10. FERROUS SULFATE [Concomitant]
     Active Substance: FERROUS SULFATE\FERROUS SULFATE, DRIED
  11. OMEPRAZOLE. [Concomitant]
     Active Substance: OMEPRAZOLE
  12. EZETIMIBE. [Concomitant]
     Active Substance: EZETIMIBE
  13. NITROGLYCERINE GLYCERYL TRINITRATE) [Concomitant]
  14. OMEGA 3 (FISH OIL) [Concomitant]
     Active Substance: OMEGA-3 FATTY ACIDS
  15. ROSUVASTATIN [Concomitant]
     Active Substance: ROSUVASTATIN

REACTIONS (2)
  - Dyspnoea [None]
  - Upper respiratory tract infection [None]

NARRATIVE: CASE EVENT DATE: 201311
